FAERS Safety Report 26127871 (Version 1)
Quarter: 2025Q4

REPORT INFORMATION
  Report Type: Spontaneous
  Country: EU (occurrence: EU)
  Receive Date: 20251206
  Receipt Date: 20251206
  Transmission Date: 20260118
  Serious: Yes (Hospitalization)
  Sender: JOHNSON AND JOHNSON
  Company Number: EU-USP-ICSR-2025-048-48_190

PATIENT
  Age: 49 Year
  Sex: Male

DRUGS (7)
  1. COBICISTAT\DARUNAVIR ETHANOLATE [Suspect]
     Active Substance: COBICISTAT\DARUNAVIR ETHANOLATE
     Indication: Alcohol withdrawal syndrome
     Dosage: DARUNAVIR/COBICISTAT 800/150 MG/DAY
  2. IBUPROFEN [Suspect]
     Active Substance: IBUPROFEN
     Indication: Alcohol withdrawal syndrome
     Dosage: TAB. IBUPROFEN 400 MG
  3. DIAZEPAM [Suspect]
     Active Substance: DIAZEPAM
     Indication: Alcohol withdrawal syndrome
     Dosage: UP TO 50 MG/DAY
  4. METHADONE [Suspect]
     Active Substance: METHADONE HYDROCHLORIDE
     Indication: Alcohol withdrawal syndrome
     Dosage: UP TO 120 ML/DAY
  5. CYANOCOBALAMIN\LIDOCAINE HYDROCHLORIDE\PYRIDOXINE HYDROCHLORIDE\THIAMI [Suspect]
     Active Substance: CYANOCOBALAMIN\LIDOCAINE HYDROCHLORIDE\PYRIDOXINE HYDROCHLORIDE\THIAMINE HYDROCHLORIDE
     Indication: Alcohol withdrawal syndrome
     Dosage: PYRIDOXINE HYDROCHLORIDE/THIAMINE HYDROCHLORIDE/CYANOCOBALAMIN/LIDOCAINE 100MG/100MG/1MG/20MG
  6. DEXTROSE\POTASSIUM CHLORIDE\SODIUM CHLORIDE\SODIUM CITRATE [Suspect]
     Active Substance: DEXTROSE\POTASSIUM CHLORIDE\SODIUM CHLORIDE\SODIUM CITRATE
     Indication: Alcohol withdrawal syndrome
     Dosage: REHYDRON (GLUCOSE/SODIUM CHLORIDE/SODIUM CITRATE/POTASSIUM CHLORIDE 6,75 G/1,3 G/1,45 G/0,75 G) + 500 ML H2O TWICE PER DAY
  7. METOCLOPRAMIDE [Suspect]
     Active Substance: METOCLOPRAMIDE
     Indication: Alcohol withdrawal syndrome
     Dosage: METOCLOPRAMIDE 10 MG

REACTIONS (2)
  - Delirium [Unknown]
  - Off label use [Unknown]
